FAERS Safety Report 13255814 (Version 6)
Quarter: 2017Q3

REPORT INFORMATION
  Report Type: Spontaneous
  Country: US (occurrence: US)
  Receive Date: 20170221
  Receipt Date: 20170830
  Transmission Date: 20171127
  Serious: Yes (Hospitalization)
  Sender: FDA-Public Use
  Company Number: US-PFIZER INC-2017064462

PATIENT
  Age: 71 Year
  Sex: Female

DRUGS (10)
  1. IBRANCE [Suspect]
     Active Substance: PALBOCICLIB
     Indication: BREAST CANCER FEMALE
     Dosage: 125 MG, UNK
     Dates: start: 201601
  2. IBRANCE [Suspect]
     Active Substance: PALBOCICLIB
     Dosage: 125 MG, UNK
     Dates: start: 201607
  3. LETROZOLE. [Suspect]
     Active Substance: LETROZOLE
     Dosage: 2.5 MG, UNK
  4. FUROSEMIDE. [Concomitant]
     Active Substance: FUROSEMIDE
     Dosage: 40 MG, UNK
  5. LISINOPRIL. [Concomitant]
     Active Substance: LISINOPRIL
     Dosage: 5 MG, UNK
  6. NYSTOP [Concomitant]
     Active Substance: NYSTATIN
     Dosage: UNK[POW 100000]
  7. VITAMIN D3 [Concomitant]
     Active Substance: CHOLECALCIFEROL
     Dosage: UNK
  8. IBRANCE [Suspect]
     Active Substance: PALBOCICLIB
     Dosage: 125 MG, CYCLIC[TAKE ONE CAPSULE BY MOUTH ONCE DAILY FOR 21 DAYS, THEN 7 DAYS OFF]
     Route: 048
     Dates: start: 2016
  9. FISH OIL [Concomitant]
     Active Substance: FISH OIL
     Dosage: 1360 MG, UNK
  10. CARVEDILOL. [Concomitant]
     Active Substance: CARVEDILOL
     Dosage: 12.5 MG, UNK

REACTIONS (7)
  - Alopecia [Unknown]
  - Musculoskeletal pain [Unknown]
  - Tachycardia [Unknown]
  - Fluid overload [Unknown]
  - White blood cell count decreased [Unknown]
  - Tooth fracture [Unknown]
  - Fatigue [Unknown]

NARRATIVE: CASE EVENT DATE: 201601
